FAERS Safety Report 9873530 (Version 1)
Quarter: 2014Q1

REPORT INFORMATION
  Report Type: Other
  Country: US (occurrence: US)
  Receive Date: 20140206
  Receipt Date: 20140206
  Transmission Date: 20141002
  Serious: No
  Sender: FDA-Public Use
  Company Number: US-ACORDA-ACO_34197_2013

PATIENT
  Age: 58 Year
  Sex: Female

DRUGS (2)
  1. AMPYRA [Suspect]
     Indication: PRODUCT USED FOR UNKNOWN INDICATION
     Dosage: 10 MG, BID
  2. AMPYRA [Suspect]
     Dosage: 10 MG, QD

REACTIONS (5)
  - General physical health deterioration [Unknown]
  - Gait disturbance [Unknown]
  - Fall [Unknown]
  - Cognitive disorder [Unknown]
  - Inappropriate schedule of drug administration [Unknown]
